FAERS Safety Report 20974233 (Version 1)
Quarter: 2022Q2

REPORT INFORMATION
  Report Type: Spontaneous
  Country: GB (occurrence: GB)
  Receive Date: 20220617
  Receipt Date: 20220617
  Transmission Date: 20220721
  Serious: Yes (Other)
  Sender: FDA-Public Use
  Company Number: GB-BRISTOL-MYERS SQUIBB COMPANY-2022-056895

PATIENT
  Age: 86 Year
  Sex: Male
  Weight: 112 kg

DRUGS (4)
  1. APIXABAN [Suspect]
     Active Substance: APIXABAN
     Indication: Deep vein thrombosis
     Dosage: DOSE : 5 MG;     FREQ : TWICE DAILY
     Route: 048
     Dates: start: 201909
  2. LEVOTHYROXINE [Concomitant]
     Active Substance: LEVOTHYROXINE
  3. VITAMIN D NOS [Concomitant]
     Active Substance: VITAMIN D NOS
  4. LATANOPROST [Concomitant]
     Active Substance: LATANOPROST

REACTIONS (6)
  - Heart rate irregular [Unknown]
  - Atrial fibrillation [Unknown]
  - Skin papilloma [Unknown]
  - Heart rate abnormal [Unknown]
  - Myoclonus [Unknown]
  - Pruritus [Unknown]
